FAERS Safety Report 18565507 (Version 1)
Quarter: 2020Q4

REPORT INFORMATION
  Report Type: Report from Study
  Country: US (occurrence: US)
  Receive Date: 20201201
  Receipt Date: 20201201
  Transmission Date: 20210114
  Serious: Yes (Hospitalization)
  Sender: FDA-Public Use
  Company Number: US-TRAVERE THERAPEUTICS, INC.-2020RTN00151

PATIENT
  Sex: Male

DRUGS (1)
  1. CHOLIC ACID [Suspect]
     Active Substance: CHOLIC ACID
     Indication: ENZYME ABNORMALITY
     Dosage: 50 MG, 2X/DAY
     Route: 048
     Dates: start: 20190710

REACTIONS (3)
  - Tonsillectomy [Recovering/Resolving]
  - Epiglottidectomy [Recovering/Resolving]
  - Adenoidectomy [Recovering/Resolving]
